FAERS Safety Report 23567070 (Version 2)
Quarter: 2024Q4

REPORT INFORMATION
  Report Type: Report from Study
  Country: US (occurrence: US)
  Receive Date: 20240226
  Receipt Date: 20241007
  Transmission Date: 20250114
  Serious: Yes (Death, Other)
  Sender: AMNEAL
  Company Number: US-AMNEAL PHARMACEUTICALS-2023-AMRX-04440

PATIENT
  Sex: Male
  Weight: 81.633 kg

DRUGS (3)
  1. CARBIDOPA\LEVODOPA [Suspect]
     Active Substance: CARBIDOPA\LEVODOPA
     Indication: Product used for unknown indication
     Dosage: (48.75/195 MG) 3 CAPSULES, 3 /DAY EVERY 5 HOURS
     Route: 048
  2. CARBIDOPA\LEVODOPA [Suspect]
     Active Substance: CARBIDOPA\LEVODOPA
     Dosage: (48.75/195 MG) 1 CAPSULES, 3 /DAY 5 HOURS APART
     Route: 048
  3. CARBIDOPA\LEVODOPA [Suspect]
     Active Substance: CARBIDOPA\LEVODOPA
     Dosage: (48.75/195 MG) 3 CAPSULES, 3 /DAY
     Route: 048
     Dates: start: 20240212

REACTIONS (4)
  - Parkinson^s disease [Fatal]
  - Urinary tract infection [Fatal]
  - Throat irritation [Unknown]
  - Panic attack [Unknown]
